FAERS Safety Report 14294868 (Version 3)
Quarter: 2018Q2

REPORT INFORMATION
  Report Type: Spontaneous
  Country: RU (occurrence: RU)
  Receive Date: 20171218
  Receipt Date: 20180511
  Transmission Date: 20180711
  Serious: Yes (Other)
  Sender: FDA-Public Use
  Company Number: RU-ASTRAZENECA-2017SF20004

PATIENT
  Sex: Female

DRUGS (2)
  1. SYMBICORT [Suspect]
     Active Substance: BUDESONIDE\FORMOTEROL FUMARATE DIHYDRATE
     Dosage: 160/4.5 MCG, 2 INHALATION, TWO TIMES A DAY (PACKED IN RUSSIA)
     Route: 055
  2. SYMBICORT [Suspect]
     Active Substance: BUDESONIDE\FORMOTEROL FUMARATE DIHYDRATE
     Dosage: 160/4.5 MCG, 1 INHALATION, TWO TIMES A DAY (MANUFACTURED IN SWEDEN)
     Route: 055

REACTIONS (4)
  - Product quality issue [Unknown]
  - Drug effect decreased [Unknown]
  - Drug ineffective [Unknown]
  - Asphyxia [Recovered/Resolved]
